APPROVED DRUG PRODUCT: BRYHALI
Active Ingredient: HALOBETASOL PROPIONATE
Strength: 0.01%
Dosage Form/Route: LOTION;TOPICAL
Application: N209355 | Product #001
Applicant: BAUSCH HEALTH AMERICAS INC
Approved: Nov 6, 2018 | RLD: Yes | RS: Yes | Type: RX

PATENTS:
Patent 10478502 | Expires: Nov 2, 2031
Patent 11986527 | Expires: Nov 2, 2031
Patent 11839656 | Expires: Nov 2, 2031
Patent 11957753 | Expires: Nov 2, 2031
Patent 12076403 | Expires: Nov 2, 2031
Patent 8809307 | Expires: Nov 2, 2031